FAERS Safety Report 16795799 (Version 1)
Quarter: 2019Q3

REPORT INFORMATION
  Report Type: Spontaneous
  Country: US (occurrence: US)
  Receive Date: 20190911
  Receipt Date: 20190911
  Transmission Date: 20191005
  Serious: Yes (Hospitalization, Other)
  Sender: FDA-Public Use
  Company Number: US-HIKMA PHARMACEUTICALS USA INC.-US-H14001-19-04821

PATIENT
  Age: 59 Year
  Sex: Male

DRUGS (2)
  1. LISINOPRIL. [Suspect]
     Active Substance: LISINOPRIL
     Indication: PRODUCT USED FOR UNKNOWN INDICATION
     Route: 065
  2. FUROSEMIDE. [Suspect]
     Active Substance: FUROSEMIDE
     Indication: PRODUCT USED FOR UNKNOWN INDICATION
     Route: 065

REACTIONS (8)
  - Myopathy [Unknown]
  - Rash pruritic [Unknown]
  - Periorbital oedema [Unknown]
  - Eczema [Unknown]
  - Angioedema [Unknown]
  - Dermatomyositis [Unknown]
  - Erythema [Unknown]
  - Subacute cutaneous lupus erythematosus [Unknown]
